FAERS Safety Report 9782374 (Version 1)
Quarter: 2013Q4

REPORT INFORMATION
  Report Type: Spontaneous
  Country: CH (occurrence: CH)
  Receive Date: 20131226
  Receipt Date: 20131226
  Transmission Date: 20140711
  Serious: Yes (Hospitalization)
  Sender: FDA-Public Use
  Company Number: CH-JNJFOC-20131211117

PATIENT
  Sex: Male
  Weight: 113 kg

DRUGS (3)
  1. ZYTIGA [Suspect]
     Indication: PROSTATE CANCER METASTATIC
     Route: 048
     Dates: start: 201309, end: 20131126
  2. PREDNISON [Concomitant]
     Indication: PRODUCT USED FOR UNKNOWN INDICATION
     Route: 065
  3. LUTEINIZING HORMONE RELEASING HORMONE AGONIST [Concomitant]
     Indication: PRODUCT USED FOR UNKNOWN INDICATION
     Route: 065

REACTIONS (5)
  - Myocardial infarction [Unknown]
  - Hot flush [Unknown]
  - Hyperhidrosis [Unknown]
  - Drug ineffective [Unknown]
  - Weight decreased [Unknown]
